FAERS Safety Report 7231541-X (Version None)
Quarter: 2011Q1

REPORT INFORMATION
  Report Type: 
  Country: None (occurrence: None)
  Receive Date: 20110107
  Receipt Date: 20110104
  Transmission Date: 20110831
  Serious: Yes (Death, Hospitalization)
  Sender: FDA-Public Use
  Company Number: 2011SP000400

PATIENT
  Age: 85 Year
  Sex: Male

DRUGS (7)
  1. ATIVAN [Concomitant]
  2. LASIX [Concomitant]
  3. ORGARAN [Suspect]
     Indication: PRODUCT USED FOR UNKNOWN INDICATION
     Dosage: ONCE
     Dates: start: 20101221, end: 20101225
  4. ORGARAN [Suspect]
     Indication: PRODUCT USED FOR UNKNOWN INDICATION
     Dosage: ONCE
     Dates: start: 20101228, end: 20101228
  5. MORPHINE [Concomitant]
  6. PANTOLOC [Concomitant]
  7. TAZOCIN [Concomitant]

REACTIONS (1)
  - DEATH [None]
